FAERS Safety Report 25006731 (Version 1)
Quarter: 2025Q1

REPORT INFORMATION
  Report Type: Spontaneous
  Country: BR (occurrence: BR)
  Receive Date: 20250225
  Receipt Date: 20250225
  Transmission Date: 20250409
  Serious: Yes (Hospitalization)
  Sender: GLAXOSMITHKLINE
  Company Number: BR-GLAXOSMITHKLINE INC-BR2025AMR021042

PATIENT

DRUGS (2)
  1. ANORO ELLIPTA [Suspect]
     Active Substance: UMECLIDINIUM BROMIDE\VILANTEROL TRIFENATATE
     Indication: Product used for unknown indication
  2. Alenia [Concomitant]
     Indication: Product used for unknown indication

REACTIONS (3)
  - Hospitalisation [Unknown]
  - Bedridden [Unknown]
  - Wrong technique in device usage process [Unknown]

NARRATIVE: CASE EVENT DATE: 20250213
